FAERS Safety Report 4776402-0 (Version None)
Quarter: 2005Q3

REPORT INFORMATION
  Report Type: 
  Country: None (occurrence: None)
  Receive Date: 20050921
  Receipt Date: 20050908
  Transmission Date: 20060218
  Serious: Yes (Hospitalization)
  Sender: FDA-Public Use
  Company Number: 2005125252

PATIENT
  Age: 23 Year
  Sex: Male

DRUGS (2)
  1. ROGAINE [Suspect]
     Indication: ALOPECIA
     Dosage: 50 MG/ML, TOPICAL
     Route: 061
     Dates: start: 20010601, end: 20050301
  2. ROGAINE [Suspect]
     Indication: ALOPECIA
     Dosage: 20 MG/ML, TOPICAL
     Route: 061
     Dates: start: 19990101, end: 20050801

REACTIONS (6)
  - EPILEPSY [None]
  - FALL [None]
  - HAIR GROWTH ABNORMAL [None]
  - LOSS OF CONSCIOUSNESS [None]
  - MUSCLE SPASMS [None]
  - SPEECH DISORDER [None]
